FAERS Safety Report 18091469 (Version 2)
Quarter: 2021Q2

REPORT INFORMATION
  Report Type: Spontaneous
  Country: None (occurrence: US)
  Receive Date: 20200730
  Receipt Date: 20210628
  Transmission Date: 20210717
  Serious: Yes (Other)
  Sender: FDA-Public Use
  Company Number: US-GLAXOSMITHKLINE-US2020145391

PATIENT
  Sex: Female

DRUGS (9)
  1. ZANTAC [Suspect]
     Active Substance: RANITIDINE HYDROCHLORIDE
     Dates: start: 20121015, end: 20191115
  2. RANITIDINE CAPSULE [Suspect]
     Active Substance: RANITIDINE
     Indication: GASTRINOMA
     Dosage: 150 MG OVER THE COUNTER
     Route: 065
     Dates: start: 200912, end: 201911
  3. ZANTAC [Suspect]
     Active Substance: RANITIDINE HYDROCHLORIDE
     Dosage: 300 MG, QD
     Route: 065
     Dates: start: 200912, end: 201911
  4. RANITIDINE. [Suspect]
     Active Substance: RANITIDINE
     Dosage: UNK
  5. RANITIDINE. [Suspect]
     Active Substance: RANITIDINE
     Dosage: UNK
  6. RANITIDINE. [Suspect]
     Active Substance: RANITIDINE
     Indication: GASTRINOMA
     Dosage: 300 MG, QD
     Route: 065
     Dates: start: 200912, end: 201911
  7. ZANTAC [Suspect]
     Active Substance: RANITIDINE HYDROCHLORIDE
     Indication: GASTRINOMA
     Dosage: 150 MG OVER THE COUNTER
     Route: 065
     Dates: start: 200912, end: 201911
  8. RANITIDINE. [Suspect]
     Active Substance: RANITIDINE
     Indication: GASTRINOMA
     Dosage: 300 MG, QD
     Route: 065
     Dates: start: 200912, end: 201911
  9. RANITIDINE CAPSULE [Suspect]
     Active Substance: RANITIDINE
     Dosage: 300 MG, QD
     Route: 065
     Dates: start: 200912, end: 201911

REACTIONS (1)
  - Renal cancer [Unknown]
